FAERS Safety Report 12153757 (Version 2)
Quarter: 2016Q1

REPORT INFORMATION
  Report Type: Spontaneous
  Country: US (occurrence: US)
  Receive Date: 20160307
  Receipt Date: 20160321
  Transmission Date: 20160526
  Serious: Yes (Hospitalization)
  Sender: FDA-Public Use
  Company Number: US-BEH-2016059303

PATIENT
  Age: 3 Year
  Sex: Male
  Weight: 12 kg

DRUGS (17)
  1. FLONASE [Concomitant]
     Active Substance: FLUTICASONE PROPIONATE
  2. VITAMIN D [Concomitant]
     Active Substance: CHOLECALCIFEROL
  3. CALCITROL [Concomitant]
     Active Substance: CALCITRIOL
  4. D-VI-SOL [Concomitant]
  5. MONTELUKAST [Concomitant]
     Active Substance: MONTELUKAST SODIUM
  6. FERROUS SULFATE [Concomitant]
     Active Substance: FERROUS SULFATE\FERROUS SULFATE, DRIED
  7. ASPIRIN. [Concomitant]
     Active Substance: ASPIRIN
  8. HIZENTRA [Suspect]
     Active Substance: HUMAN IMMUNOGLOBULIN G
     Indication: SELECTIVE IGG SUBCLASS DEFICIENCY
     Dosage: 2 GM 10 ML VIALS
     Route: 058
     Dates: start: 20150722
  9. LEVALBUTEROL. [Concomitant]
     Active Substance: LEVALBUTEROL
  10. LIDOCAINE/PRILOCAINE [Concomitant]
  11. MAGNESIUM [Concomitant]
     Active Substance: MAGNESIUM
  12. XOPENEX [Concomitant]
     Active Substance: LEVALBUTEROL HYDROCHLORIDE
  13. EPIPEN [Concomitant]
     Active Substance: EPINEPHRINE
  14. ALVESCO [Concomitant]
     Active Substance: CICLESONIDE
  15. ACETAMINOPHEN. [Concomitant]
     Active Substance: ACETAMINOPHEN
  16. CALCIUM [Concomitant]
     Active Substance: CALCIUM
  17. FUROSEMIDE. [Concomitant]
     Active Substance: FUROSEMIDE

REACTIONS (3)
  - Respiratory syncytial virus infection [Recovering/Resolving]
  - Adenovirus infection [Recovering/Resolving]
  - Pneumonia viral [Recovering/Resolving]

NARRATIVE: CASE EVENT DATE: 20160204
